FAERS Safety Report 12669400 (Version 3)
Quarter: 2016Q3

REPORT INFORMATION
  Report Type: Spontaneous
  Country: DE (occurrence: DE)
  Receive Date: 20160819
  Receipt Date: 20160928
  Transmission Date: 20161109
  Serious: Yes (Hospitalization)
  Sender: FDA-Public Use
  Company Number: DE-NOVOPROD-503292

PATIENT
  Age: 14 Year
  Sex: Female
  Weight: 57 kg

DRUGS (2)
  1. NOVORAPID [Suspect]
     Active Substance: INSULIN ASPART
     Indication: TYPE 1 DIABETES MELLITUS
     Dosage: 60.6 IE, QD
     Route: 058
     Dates: start: 20160716, end: 20160717
  2. NOVORAPID [Suspect]
     Active Substance: INSULIN ASPART
     Dosage: UNK

REACTIONS (4)
  - Ketoacidosis [Recovered/Resolved]
  - Product container issue [Unknown]
  - Blood glucose increased [Recovering/Resolving]
  - Product leakage [Unknown]

NARRATIVE: CASE EVENT DATE: 20160723
